FAERS Safety Report 19851708 (Version 1)
Quarter: 2021Q3

REPORT INFORMATION
  Report Type: Spontaneous
  Country: IT (occurrence: IT)
  Receive Date: 20210917
  Receipt Date: 20210917
  Transmission Date: 20211014
  Serious: Yes (Other)
  Sender: FDA-Public Use
  Company Number: IT-ROCHE-2913061

PATIENT
  Sex: Female

DRUGS (1)
  1. OCRELIZUMAB. [Suspect]
     Active Substance: OCRELIZUMAB
     Indication: MULTIPLE SCLEROSIS
     Dosage: LAST INFUSION OF OCRELIZUMAB 600MG IN NOV/2020
     Route: 065

REACTIONS (3)
  - Product dose omission issue [Unknown]
  - Urinary tract infection [Recovered/Resolved]
  - Mastoiditis [Recovered/Resolved]
